FAERS Safety Report 8429469-2 (Version None)
Quarter: 2012Q2

REPORT INFORMATION
  Report Type: 
  Country: None (occurrence: None)
  Receive Date: 20120516
  Receipt Date: 20120504
  Transmission Date: 20120825
  Serious: Yes (Death)
  Sender: FDA-Public Use
  Company Number: 2012PROUSAS01293

PATIENT
  Age: 59 Year
  Sex: Male
  Weight: 87.5 kg

DRUGS (4)
  1. ZOMETA [Concomitant]
  2. CALTRATE+ D (CALCIUM, ERGOCALCIFEROL) [Concomitant]
  3. PROVENGE [Suspect]
     Indication: PROSTATE CANCER METASTATIC
     Dosage: 250  ML, SINGLE, INTRAVENOUS
     Route: 042
     Dates: start: 20120416, end: 20120416
  4. TRELSTAR [Concomitant]

REACTIONS (4)
  - PULMONARY EMBOLISM [None]
  - CHILLS [None]
  - SUDDEN DEATH [None]
  - MYOCARDIAL INFARCTION [None]
